FAERS Safety Report 24297552 (Version 2)
Quarter: 2024Q4

REPORT INFORMATION
  Report Type: Report from Study
  Country: GB (occurrence: GB)
  Receive Date: 20240909
  Receipt Date: 20241009
  Transmission Date: 20250114
  Serious: Yes (Other)
  Sender: SAMSUNG BIOEPIS
  Company Number: GB-SAMSUNG BIOEPIS-SB-2024-26091

PATIENT
  Age: 59 Year
  Sex: Female

DRUGS (1)
  1. IMRALDI [Suspect]
     Active Substance: ADALIMUMAB
     Indication: Crohn^s disease
     Dosage: 40 MG/0.8 ML;
     Route: 058
     Dates: start: 201905

REACTIONS (2)
  - Renal failure [Unknown]
  - Tubulointerstitial nephritis [Unknown]
